FAERS Safety Report 19005342 (Version 4)
Quarter: 2024Q1

REPORT INFORMATION
  Report Type: Spontaneous
  Country: FR (occurrence: FR)
  Receive Date: 20210313
  Receipt Date: 20240321
  Transmission Date: 20240409
  Serious: Yes (Hospitalization, Other)
  Sender: FDA-Public Use
  Company Number: FR-TAKEDA-2021TUS016387

PATIENT
  Age: 70 Year
  Sex: Male
  Weight: 125 kg

DRUGS (8)
  1. FEBUXOSTAT [Suspect]
     Active Substance: FEBUXOSTAT
     Indication: Gout
     Dosage: 80 MILLIGRAM, QD
     Route: 048
     Dates: end: 20210216
  2. POTASSIUM CHLORIDE [Suspect]
     Active Substance: POTASSIUM CHLORIDE
     Indication: Hypokalaemia
     Dosage: 6 DOSAGE FORM, QD
     Route: 048
     Dates: start: 20210213, end: 20210216
  3. FOLIC ACID [Suspect]
     Active Substance: FOLIC ACID
     Indication: Folate deficiency
     Dosage: 10 MILLIGRAM, QD
     Route: 048
     Dates: start: 20210213, end: 20210216
  4. FUROSEMIDE [Suspect]
     Active Substance: FUROSEMIDE
     Indication: Hypertension
     Dosage: 125 MILLIGRAM, QD
     Route: 048
     Dates: end: 20210216
  5. IOMERON [Suspect]
     Active Substance: IOMEPROL
     Indication: Computerised tomogram abdomen
     Dosage: 120 MILLILITER
     Route: 042
     Dates: start: 20210214, end: 20210214
  6. TAMSULOSIN HYDROCHLORIDE [Suspect]
     Active Substance: TAMSULOSIN HYDROCHLORIDE
     Indication: Folate deficiency
     Dosage: 6 DOSAGE FORM, QD
     Route: 065
     Dates: end: 20210216
  7. FUSIDIC ACID [Suspect]
     Active Substance: FUSIDIC ACID
     Indication: Folate deficiency
     Dosage: 4 DOSAGE FORM, QD
     Route: 065
     Dates: end: 20210216
  8. AMBROXOL HYDROCHLORIDE [Suspect]
     Active Substance: AMBROXOL HYDROCHLORIDE
     Indication: Gout
     Dosage: 1 DOSAGE FORM, QD
     Route: 048
     Dates: end: 20210216

REACTIONS (1)
  - Acute kidney injury [Recovered/Resolved]

NARRATIVE: CASE EVENT DATE: 20210215
